FAERS Safety Report 18131984 (Version 15)
Quarter: 2021Q2

REPORT INFORMATION
  Report Type: Report from Study
  Country: ES (occurrence: ES)
  Receive Date: 20200810
  Receipt Date: 20210629
  Transmission Date: 20210717
  Serious: Yes (Death, Hospitalization)
  Sender: FDA-Public Use
  Company Number: ES-ROCHE-2641691

PATIENT
  Age: 47 Year
  Sex: Male
  Weight: 71.3 kg

DRUGS (57)
  1. METHYLPREDNISOLONE. [Concomitant]
     Active Substance: METHYLPREDNISOLONE
     Route: 042
     Dates: start: 20200715, end: 20200715
  2. METHYLPREDNISOLONE. [Concomitant]
     Active Substance: METHYLPREDNISOLONE
     Route: 041
     Dates: start: 20200722, end: 20200722
  3. PARACETAMOL [Concomitant]
     Active Substance: ACETAMINOPHEN
     Route: 042
     Dates: start: 20200818, end: 20200818
  4. RED BLOOD CELL CONCENTRATE [Concomitant]
     Active Substance: HUMAN RED BLOOD CELL
     Dates: start: 20200703, end: 20200703
  5. METHADONE [Concomitant]
     Active Substance: METHADONE HYDROCHLORIDE
     Indication: TUMOUR PAIN
     Dates: start: 20200819, end: 20200901
  6. METAMIZOLE [Concomitant]
     Active Substance: METAMIZOLE
     Indication: CYTOKINE RELEASE SYNDROME
     Dates: start: 20200723, end: 20200727
  7. VITAMINE A [Concomitant]
     Active Substance: RETINOL
     Indication: TUMOUR PAIN
     Dates: start: 20200827, end: 20200901
  8. PARACETAMOL [Concomitant]
     Active Substance: ACETAMINOPHEN
     Route: 042
     Dates: start: 20200626, end: 20200626
  9. PARACETAMOL [Concomitant]
     Active Substance: ACETAMINOPHEN
     Route: 042
     Dates: start: 20200625, end: 20200625
  10. PARACETAMOL [Concomitant]
     Active Substance: ACETAMINOPHEN
     Route: 041
     Dates: start: 20200722, end: 20200722
  11. PARACETAMOL [Concomitant]
     Active Substance: ACETAMINOPHEN
     Route: 042
     Dates: start: 20200626, end: 20200626
  12. FENTANYL. [Concomitant]
     Active Substance: FENTANYL
     Route: 048
     Dates: start: 20200810, end: 20200818
  13. ALLOPURINOL. [Concomitant]
     Active Substance: ALLOPURINOL
     Indication: HYPERURICAEMIA
     Dates: start: 20200610, end: 20200902
  14. LOSARTAN. [Concomitant]
     Active Substance: LOSARTAN
     Indication: HYPERTENSION
     Dates: start: 2018, end: 20200708
  15. PREDNISONE. [Concomitant]
     Active Substance: PREDNISONE
     Indication: TUMOUR PAIN
     Dates: start: 20200610, end: 20200622
  16. FUROSEMIDE. [Concomitant]
     Active Substance: FUROSEMIDE
     Dates: start: 20200624, end: 20200628
  17. METHYLPREDNISOLONE. [Concomitant]
     Active Substance: METHYLPREDNISOLONE
     Route: 041
     Dates: start: 20200709, end: 20200709
  18. LINEZOLID. [Concomitant]
     Active Substance: LINEZOLID
     Indication: DEVICE RELATED INFECTION
     Dosage: START DATE: 06/AUG/2020
     Dates: start: 20200806, end: 20200810
  19. DIAZEPAM. [Concomitant]
     Active Substance: DIAZEPAM
     Dates: start: 20191003, end: 20200713
  20. NEBIVOLOL. [Concomitant]
     Active Substance: NEBIVOLOL
     Indication: HYPERTENSION
     Dates: start: 2018, end: 20200708
  21. MORPHINE [Concomitant]
     Active Substance: MORPHINE
     Indication: TUMOUR PAIN
     Dates: start: 20200902, end: 20200908
  22. MAGNESIUM [Concomitant]
     Active Substance: MAGNESIUM
     Dates: start: 20200827, end: 20200901
  23. PIPERACILINA + TAZOBACTAM [Concomitant]
     Active Substance: PIPERACILLIN SODIUM\TAZOBACTAM SODIUM
     Indication: CYTOKINE RELEASE SYNDROME
     Dates: start: 20200723, end: 20200727
  24. DEXKETOPROFEN [Concomitant]
     Active Substance: DEXKETOPROFEN
     Dates: start: 20200723, end: 20200727
  25. DEXCHLORPHENIRAMINE [Concomitant]
     Active Substance: DEXCHLORPHENIRAMINE
     Route: 042
     Dates: start: 20200626, end: 20200626
  26. RED BLOOD CELL CONCENTRATE [Concomitant]
     Active Substance: HUMAN RED BLOOD CELL
     Dates: start: 20200820, end: 20200820
  27. PREDNISONE. [Concomitant]
     Active Substance: PREDNISONE
     Dates: start: 20200813, end: 20200817
  28. FUROSEMIDE. [Concomitant]
     Active Substance: FUROSEMIDE
     Dates: start: 20200817, end: 20200824
  29. GABAPENTIN. [Concomitant]
     Active Substance: GABAPENTIN
     Indication: TUMOUR PAIN
     Dates: start: 20200813, end: 20200901
  30. OXYGEN. [Concomitant]
     Active Substance: OXYGEN
     Indication: HYPOXIA
  31. OBINUTUZUMAB. [Suspect]
     Active Substance: OBINUTUZUMAB
     Indication: NON-HODGKIN^S LYMPHOMA
     Dosage: LAST DOSE OBINUTUZUMAB ADMINISTERED PRIOR SAE 1000 MG?START DATE OF MOST RECENT DOSE OF OBINUTUZUMAB
     Route: 042
     Dates: start: 20200625
  32. POLATUZUMAB VEDOTIN. [Suspect]
     Active Substance: POLATUZUMAB VEDOTIN
     Indication: NON-HODGKIN^S LYMPHOMA
     Dosage: LAST DOSE OF POLATUZUMAB VEDOTIN ADMINISTERED PRIOR AE 1.8 MG?LAST DOSE OF POLATUZUMAB VEDOTIN ADMIN
     Route: 042
     Dates: start: 20200626
  33. DEXCHLORPHENIRAMINE [Concomitant]
     Active Substance: DEXCHLORPHENIRAMINE
     Route: 041
     Dates: start: 20200625, end: 20200625
  34. DEXCHLORPHENIRAMINE [Concomitant]
     Active Substance: DEXCHLORPHENIRAMINE
     Route: 041
     Dates: start: 20200722, end: 20200722
  35. PARACETAMOL [Concomitant]
     Active Substance: ACETAMINOPHEN
     Indication: PYREXIA
     Route: 042
     Dates: start: 20200709, end: 20200709
  36. PARACETAMOL [Concomitant]
     Active Substance: ACETAMINOPHEN
     Route: 042
     Dates: start: 20200722, end: 20200722
  37. FENTANYL. [Concomitant]
     Active Substance: FENTANYL
     Indication: TUMOUR PAIN
     Dates: start: 20200628, end: 20200819
  38. ALLOPURINOL. [Concomitant]
     Active Substance: ALLOPURINOL
     Dates: start: 20200628, end: 20200902
  39. IBUPROFEN. [Concomitant]
     Active Substance: IBUPROFEN
     Indication: TUMOUR PAIN
     Dates: start: 20200809, end: 20200810
  40. OMEPRAZOLE. [Concomitant]
     Active Substance: OMEPRAZOLE
     Dates: start: 202001, end: 20200707
  41. PIPERACILINA + TAZOBACTAM [Concomitant]
     Active Substance: PIPERACILLIN SODIUM\TAZOBACTAM SODIUM
     Dates: start: 20200716
  42. DEXAMETHASONE. [Concomitant]
     Active Substance: DEXAMETHASONE
     Route: 042
     Dates: start: 20200625, end: 20200625
  43. DEXCHLORPHENIRAMINE [Concomitant]
     Active Substance: DEXCHLORPHENIRAMINE
     Route: 042
     Dates: start: 20200715, end: 20200715
  44. DEXCHLORPHENIRAMINE [Concomitant]
     Active Substance: DEXCHLORPHENIRAMINE
     Route: 041
     Dates: start: 20200818, end: 20200818
  45. FENTANYL. [Concomitant]
     Active Substance: FENTANYL
     Dates: start: 20200610, end: 20200730
  46. POTASSION [Concomitant]
     Active Substance: POTASSIUM CHLORIDE
     Dates: start: 20200824, end: 20200901
  47. METHYLPREDNISOLONE. [Concomitant]
     Active Substance: METHYLPREDNISOLONE
     Route: 041
     Dates: start: 20200818, end: 20200818
  48. RASBURICASE [Concomitant]
     Active Substance: RASBURICASE
     Dates: start: 20200624, end: 20200628
  49. DIAZEPAM. [Concomitant]
     Active Substance: DIAZEPAM
     Dates: start: 20191003, end: 20200713
  50. PAROXETINE. [Concomitant]
     Active Substance: PAROXETINE
     Indication: DEPRESSION
     Dates: start: 2018, end: 20200902
  51. VITAMIN E [Concomitant]
     Active Substance: .ALPHA.-TOCOPHEROL
     Indication: TUMOUR PAIN
     Dates: start: 20200827, end: 20200901
  52. RO7082859 (CD20/C3 T?CELL BISPECIFIC MAB) [Suspect]
     Active Substance: GLOFITAMAB
     Indication: NON-HODGKIN^S LYMPHOMA
     Dosage: LAST DOSE OF RO7082859 ADMINISTERED PRIOR SAE 2.5 MG?START DATE OF MOST RECENT DOSE OF RO7082859 PRI
     Route: 042
     Dates: start: 20200709
  53. TOCILIZUMAB. [Suspect]
     Active Substance: TOCILIZUMAB
     Indication: NON-HODGKIN^S LYMPHOMA
     Dosage: DOSE LAST TOCILIZUMAB ADMINISTERED ADMIN PRIOR AE/SAE 560 MG AND TOTAL VOLUME 100 ML?START DATE OF M
     Route: 042
     Dates: start: 20200819
  54. DEXCHLORPHENIRAMINE [Concomitant]
     Active Substance: DEXCHLORPHENIRAMINE
     Route: 042
     Dates: start: 20200709, end: 20200709
  55. RED BLOOD CELL CONCENTRATE [Concomitant]
     Active Substance: HUMAN RED BLOOD CELL
     Indication: ANAEMIA
     Dates: start: 20200725, end: 20200726
  56. DIAZEPAM. [Concomitant]
     Active Substance: DIAZEPAM
     Dates: start: 20200720, end: 20200902
  57. FUROSEMIDE. [Concomitant]
     Active Substance: FUROSEMIDE
     Dates: start: 20200709, end: 20200720

REACTIONS (4)
  - Neutropenia [Recovered/Resolved]
  - Cytokine release syndrome [Recovered/Resolved]
  - Cytokine release syndrome [Recovered/Resolved]
  - Neutropenia [Recovered/Resolved]

NARRATIVE: CASE EVENT DATE: 20200702
